FAERS Safety Report 7796141-1 (Version None)
Quarter: 2011Q4

REPORT INFORMATION
  Report Type: 
  Country: None (occurrence: None)
  Receive Date: 20111004
  Receipt Date: 20110926
  Transmission Date: 20120403
  Serious: Yes (Other)
  Sender: FDA-Public Use
  Company Number: JP-TYCO HEALTHCARE/MALLINCKRODT-T201100959

PATIENT
  Age: 69 Year
  Sex: Female

DRUGS (1)
  1. OPTIRAY 160 [Suspect]
     Indication: COMPUTERISED TOMOGRAM
     Dosage: 91 ML, SINGLE
     Dates: start: 20110422, end: 20110422

REACTIONS (3)
  - BLOOD PRESSURE DECREASED [None]
  - SNEEZING [None]
  - LOSS OF CONSCIOUSNESS [None]
